FAERS Safety Report 25640639 (Version 4)
Quarter: 2025Q4

REPORT INFORMATION
  Report Type: Spontaneous
  Country: CO (occurrence: CO)
  Receive Date: 20250804
  Receipt Date: 20251006
  Transmission Date: 20260117
  Serious: No
  Sender: PFIZER
  Company Number: CO-PFIZER INC-PV202500092600

PATIENT
  Age: 16 Year
  Sex: Male
  Weight: 53 kg

DRUGS (1)
  1. GENOTROPIN [Suspect]
     Active Substance: SOMATROPIN
     Indication: Short stature
     Dosage: 2.4 MG, DAILY

REACTIONS (3)
  - Device power source issue [Unknown]
  - Drug dose omission by device [Recovered/Resolved]
  - Off label use [Unknown]
